FAERS Safety Report 13299070 (Version 1)
Quarter: 2017Q1

REPORT INFORMATION
  Report Type: Spontaneous
  Country: ZA (occurrence: ZA)
  Receive Date: 20170306
  Receipt Date: 20170306
  Transmission Date: 20170428
  Serious: Yes (Other)
  Sender: FDA-Public Use
  Company Number: PHHY2017ZA032917

PATIENT
  Sex: Female

DRUGS (1)
  1. TYKERB [Suspect]
     Active Substance: LAPATINIB DITOSYLATE
     Indication: BREAST CANCER METASTATIC
     Dosage: 1250 MG, QD (5 TABLETS PER DAY)
     Route: 065

REACTIONS (3)
  - Metastases to central nervous system [Unknown]
  - Second primary malignancy [Unknown]
  - Malignant neoplasm progression [Unknown]
